FAERS Safety Report 13397652 (Version 1)
Quarter: 2017Q2

REPORT INFORMATION
  Report Type: Spontaneous
  Country: US (occurrence: US)
  Receive Date: 20170403
  Receipt Date: 20170403
  Transmission Date: 20170830
  Serious: No
  Sender: FDA-Public Use
  Company Number: US-AVEDRO-AVE-2017-0037-AE

PATIENT
  Sex: Male

DRUGS (1)
  1. RIBOFLAVIN 5^-PHOSPHATE SODIUM [Suspect]
     Active Substance: RIBOFLAVIN 5^-PHOSPHATE SODIUM
     Indication: PRODUCT USED FOR UNKNOWN INDICATION
     Route: 047
     Dates: start: 201701

REACTIONS (4)
  - Photophobia [Recovered/Resolved]
  - Procedural pain [None]
  - Eye pain [Recovered/Resolved]
  - Post procedural complication [None]

NARRATIVE: CASE EVENT DATE: 201701
